FAERS Safety Report 10017721 (Version 1)
Quarter: 2014Q1

REPORT INFORMATION
  Report Type: Spontaneous
  Country: US (occurrence: US)
  Receive Date: 20140318
  Receipt Date: 20140318
  Transmission Date: 20141002
  Serious: Yes (Life-Threatening, Hospitalization)
  Sender: FDA-Public Use
  Company Number: US-BRISTOL-MYERS SQUIBB COMPANY-17478017

PATIENT
  Age: 57 Year
  Sex: Male

DRUGS (2)
  1. ERBITUX [Suspect]
     Indication: HEAD AND NECK CANCER
     Dates: start: 20130313
  2. BENADRYL [Concomitant]
     Indication: PREMEDICATION
     Dosage: 30 MINUTE PRIOR TO HIS INFUSION

REACTIONS (1)
  - Infusion related reaction [Unknown]
